FAERS Safety Report 17058381 (Version 1)
Quarter: 2019Q4

REPORT INFORMATION
  Report Type: Spontaneous
  Country: IL (occurrence: IL)
  Receive Date: 20191121
  Receipt Date: 20191121
  Transmission Date: 20200122
  Serious: Yes (Death, Other)
  Sender: FDA-Public Use
  Company Number: IL-TEVA-2019-IL-1140905

PATIENT
  Sex: Female

DRUGS (1)
  1. CLONAX (CLONAZEPAM) [Suspect]
     Active Substance: CLONAZEPAM
     Route: 065

REACTIONS (3)
  - Dependence [Unknown]
  - General physical health deterioration [Unknown]
  - Drug dependence [Fatal]
